FAERS Safety Report 6978432-7 (Version None)
Quarter: 2010Q3

REPORT INFORMATION
  Report Type: 
  Country: None (occurrence: None)
  Receive Date: 20100913
  Receipt Date: 20100903
  Transmission Date: 20110219
  Serious: Yes (Death)
  Sender: FDA-Public Use
  Company Number: NZ-CELGENEUS-118-20785-10081220

PATIENT
  Sex: Female
  Weight: 65 kg

DRUGS (1)
  1. THALIDOMIDE [Suspect]
     Route: 048
     Dates: start: 20070904, end: 20100708

REACTIONS (2)
  - AORTIC STENOSIS [None]
  - HEPATIC CIRRHOSIS [None]
